FAERS Safety Report 9306961 (Version 1)
Quarter: 2013Q2

REPORT INFORMATION
  Report Type: Spontaneous
  Country: US (occurrence: US)
  Receive Date: 20130523
  Receipt Date: 20130523
  Transmission Date: 20140414
  Serious: No
  Sender: FDA-Public Use
  Company Number: US-AMGEN-USASP2013026268

PATIENT
  Age: 84 Year
  Sex: Male

DRUGS (3)
  1. ARANESP [Suspect]
     Indication: PRODUCT USED FOR UNKNOWN INDICATION
     Route: 065
  2. VELCADE [Suspect]
  3. REVLIMID [Concomitant]
     Indication: PLASMA CELL MYELOMA
     Dosage: 15 MG, UNK
     Dates: start: 201209

REACTIONS (1)
  - Rash pruritic [Unknown]
